FAERS Safety Report 6141096-9 (Version None)
Quarter: 2009Q2

REPORT INFORMATION
  Report Type: 
  Country: None (occurrence: None)
  Receive Date: 20090402
  Receipt Date: 20090325
  Transmission Date: 20091009
  Serious: Yes (Hospitalization, Other)
  Sender: FDA-Public Use
  Company Number: PHHY2009FR11659

PATIENT
  Age: 58 Year
  Sex: Female

DRUGS (5)
  1. CYCLOSPORINE [Suspect]
     Indication: LIVER TRANSPLANT
  2. TACROLIMUS [Suspect]
     Indication: LIVER TRANSPLANT
  3. MYCOPHENOLATE MOFETIL [Concomitant]
     Indication: LIVER TRANSPLANT
  4. PREDNISONE [Concomitant]
     Indication: LIVER TRANSPLANT
     Dosage: TAPER TO 20 MG
  5. GANCICLOVIR [Concomitant]
     Indication: PROPHYLAXIS
     Route: 042

REACTIONS (14)
  - ASCITES [None]
  - CHOLESTASIS [None]
  - CONVULSIONS LOCAL [None]
  - FIBROSIS [None]
  - LIVER FUNCTION TEST ABNORMAL [None]
  - LIVER TRANSPLANT [None]
  - PARACENTESIS [None]
  - PLEURAL EFFUSION [None]
  - PORTAL HYPERTENSION [None]
  - PSEUDOMONAS INFECTION [None]
  - RENAL DISORDER [None]
  - STENT PLACEMENT [None]
  - VENOOCCLUSIVE LIVER DISEASE [None]
  - WEIGHT INCREASED [None]
